FAERS Safety Report 9541826 (Version 1)
Quarter: 2013Q2

REPORT INFORMATION
  Report Type: Spontaneous
  Country: US (occurrence: None)
  Receive Date: 20130524
  Receipt Date: 20130524
  Transmission Date: 20140414
  Serious: No
  Sender: FDA-Public Use
  Company Number: PHEH2012US023675

PATIENT
  Age: 57 Year
  Sex: Female
  Weight: 85.3 kg

DRUGS (1)
  1. GILENYA [Suspect]
     Indication: MULTIPLE SCLEROSIS
     Route: 048
     Dates: start: 20121129

REACTIONS (4)
  - Confusional state [None]
  - Feeling cold [None]
  - Feeling abnormal [None]
  - Pain in extremity [None]
